FAERS Safety Report 22124318 (Version 1)
Quarter: 2023Q1

REPORT INFORMATION
  Report Type: Spontaneous
  Country: IL (occurrence: IL)
  Receive Date: 20230322
  Receipt Date: 20230322
  Transmission Date: 20230418
  Serious: Yes (Hospitalization, Other)
  Sender: FDA-Public Use
  Company Number: IL-AMGEN-ISRSP2023045841

PATIENT
  Age: 71 Year
  Sex: Female

DRUGS (2)
  1. KYPROLIS [Suspect]
     Active Substance: CARFILZOMIB
     Indication: Plasma cell myeloma
     Dosage: 30 MILLIGRAM, QWK
     Route: 065
     Dates: start: 20230130
  2. KYPROLIS [Suspect]
     Active Substance: CARFILZOMIB
     Dosage: 105 MILLIGRAM
     Route: 065
     Dates: start: 20230208, end: 2023

REACTIONS (2)
  - Lung neoplasm malignant [Not Recovered/Not Resolved]
  - Myocardial infarction [Unknown]

NARRATIVE: CASE EVENT DATE: 20230101
